FAERS Safety Report 13895089 (Version 2)
Quarter: 2017Q4

REPORT INFORMATION
  Report Type: Report from Study
  Country: None (occurrence: CH)
  Receive Date: 20170823
  Receipt Date: 20171207
  Transmission Date: 20180320
  Serious: Yes (Death, Hospitalization, Other)
  Sender: FDA-Public Use
  Company Number: CH-ABBVIE-17K-151-2033974-00

PATIENT
  Sex: Male

DRUGS (3)
  1. QUETIAPINUM [Concomitant]
     Indication: PRODUCT USED FOR UNKNOWN INDICATION
     Dosage: HALF A TABLET IN THE MORNING, HALF A TABLET IN THE EVENING, ONE TABLET AT NIGHT
  2. DUODOPA [Suspect]
     Active Substance: CARBIDOPA\LEVODOPA
     Indication: PARKINSON^S DISEASE
     Dosage: MORNING DOSE 10.0ML, CONTINUOUS RATE DAY 2.7ML/H, EXTRA DOSE 1.5ML?16H THERAPY
     Route: 050
     Dates: start: 20170508, end: 20170707
  3. DUODOPA [Suspect]
     Active Substance: CARBIDOPA\LEVODOPA
     Dosage: MORNING DOSE 10.0ML, CONTINUOUS RATE DAY 2.9ML/H, EXTRA DOSE 1.5ML?16H THERAPY
     Route: 050
     Dates: start: 20170707

REACTIONS (7)
  - Pneumonia [Fatal]
  - Dysphagia [Unknown]
  - Akinesia [Recovering/Resolving]
  - Inflammatory marker increased [Unknown]
  - Drug ineffective [Unknown]
  - Stoma site pain [Recovered/Resolved]
  - Device issue [Recovered/Resolved]

NARRATIVE: CASE EVENT DATE: 2017
